FAERS Safety Report 9780667 (Version 2)
Quarter: 2014Q1

REPORT INFORMATION
  Report Type: Spontaneous
  Country: SE (occurrence: SE)
  Receive Date: 20131224
  Receipt Date: 20140123
  Transmission Date: 20141002
  Serious: Yes (Other)
  Sender: FDA-Public Use
  Company Number: SE-MERCK-1312SWE008196

PATIENT
  Sex: Male

DRUGS (1)
  1. NASONEX [Suspect]
     Indication: SINUSITIS
     Dosage: 1 SPRAY IN EACH NOSTRIL, MORNING AND NIGHT
     Dates: start: 2006

REACTIONS (5)
  - Surgery [Unknown]
  - Femur fracture [Unknown]
  - Scab [Not Recovered/Not Resolved]
  - Nasopharyngitis [Unknown]
  - Epistaxis [Not Recovered/Not Resolved]
